FAERS Safety Report 22656132 (Version 3)
Quarter: 2024Q1

REPORT INFORMATION
  Report Type: Other
  Country: AT (occurrence: None)
  Receive Date: 20230629
  Receipt Date: 20240308
  Transmission Date: 20240410
  Serious: Yes (Death, Hospitalization, Other)
  Sender: FDA-Public Use
  Company Number: AT-ROCHE-3352721

PATIENT
  Age: 72 Year
  Sex: Female

DRUGS (14)
  1. GLOFITAMAB [Suspect]
     Active Substance: GLOFITAMAB
     Indication: Burkitt^s lymphoma
     Dosage: MOST RECENT DOSE WAS RECEIVED ON 28/APR/2023
     Route: 065
  2. POSACONAZOLE [Concomitant]
     Active Substance: POSACONAZOLE
  3. SULFAMETHOXAZOLE\TRIMETHOPRIM [Concomitant]
     Active Substance: SULFAMETHOXAZOLE\TRIMETHOPRIM
     Dosage: 80/400 MG 1X MON.-WED.-FRI.
  4. VALACYCLOVIR HYDROCHLORIDE [Concomitant]
     Active Substance: VALACYCLOVIR HYDROCHLORIDE
  5. ASCORBIC ACID\CALCIUM PHOSPHATE\CHOLECALCIFEROL\CITRIC ACID MONOHYDRAT [Concomitant]
     Active Substance: ASCORBIC ACID\CALCIUM PHOSPHATE\CHOLECALCIFEROL\CITRIC ACID MONOHYDRATE
     Dosage: 500 MG/800 IU
  6. PANTOPRAZOLE [Concomitant]
     Active Substance: PANTOPRAZOLE
  7. URSODIOL [Concomitant]
     Active Substance: URSODIOL
  8. KALIORAL [Concomitant]
  9. ANTIFLAT [Concomitant]
  10. VANCOMYCIN [Concomitant]
     Active Substance: VANCOMYCIN
     Dates: start: 20230505, end: 20230516
  11. AZITHROMYCIN [Concomitant]
     Active Substance: AZITHROMYCIN
     Dates: start: 20230517, end: 20230519
  12. ACETAMINOPHEN [Concomitant]
     Active Substance: ACETAMINOPHEN
     Route: 048
  13. DIPHENHYDRAMINE HYDROCHLORIDE [Concomitant]
     Active Substance: DIPHENHYDRAMINE HYDROCHLORIDE
     Route: 048
  14. POLATUZUMAB VEDOTIN [Concomitant]
     Active Substance: POLATUZUMAB VEDOTIN
     Dates: start: 20221124, end: 20221204

REACTIONS (15)
  - Disease progression [Fatal]
  - Drug ineffective [Unknown]
  - Pneumonia [Recovering/Resolving]
  - Enteritis [Unknown]
  - Off label use [Unknown]
  - Acarodermatitis [Unknown]
  - Autoimmune hepatitis [Unknown]
  - Lung infiltration [Unknown]
  - Acute kidney injury [Unknown]
  - Ascites [Unknown]
  - Hydronephrosis [Unknown]
  - Cachexia [Unknown]
  - Large intestinal stenosis [Unknown]
  - Gastrointestinal lymphoma [Unknown]
  - Tumour invasion [Fatal]

NARRATIVE: CASE EVENT DATE: 20230401
